FAERS Safety Report 7208587-0 (Version None)
Quarter: 2011Q1

REPORT INFORMATION
  Report Type: 
  Country: None (occurrence: None)
  Receive Date: 20110104
  Receipt Date: 20101209
  Transmission Date: 20110831
  Serious: No
  Sender: FDA-Public Use
  Company Number: US-B.I. PHARMACEUTICALS,INC./RIDGEFIELD-2010-BP-14180BP

PATIENT
  Sex: Female

DRUGS (9)
  1. ASCORBIC ACID [Concomitant]
     Indication: PROPHYLAXIS
  2. LAMOTRIGINE [Concomitant]
     Indication: BIPOLAR DISORDER
  3. PRADAXA [Suspect]
     Indication: ATRIAL FIBRILLATION
     Dosage: 300 MG
     Route: 048
     Dates: start: 20101101, end: 20101101
  4. COREG [Concomitant]
     Indication: HYPERTENSION
  5. DARVOCET [Concomitant]
     Indication: SPINAL COLUMN STENOSIS
  6. ZOLOFT [Concomitant]
     Indication: BIPOLAR DISORDER
  7. VITAMIN D [Concomitant]
     Indication: PROPHYLAXIS
  8. VYTORIN [Concomitant]
     Indication: BLOOD CHOLESTEROL INCREASED
  9. COUMADIN [Concomitant]
     Indication: ATRIAL FIBRILLATION
     Dates: start: 20101101

REACTIONS (3)
  - CHEST DISCOMFORT [None]
  - DYSPHAGIA [None]
  - DIARRHOEA [None]
